FAERS Safety Report 11869888 (Version 2)
Quarter: 2016Q1

REPORT INFORMATION
  Report Type: Spontaneous
  Country: JP (occurrence: JP)
  Receive Date: 20151228
  Receipt Date: 20160316
  Transmission Date: 20160526
  Serious: Yes (Hospitalization)
  Sender: FDA-Public Use
  Company Number: JP-ACCORD-036537

PATIENT
  Age: 39 Year
  Sex: Male

DRUGS (1)
  1. ALLOPURINOL/ALLOPURINOL SODIUM [Suspect]
     Active Substance: ALLOPURINOL SODIUM
     Indication: HYPERURICAEMIA

REACTIONS (6)
  - Cholestasis [None]
  - Drug ineffective [None]
  - Renal impairment [Not Recovered/Not Resolved]
  - Coagulopathy [None]
  - Liver transplant [None]
  - Hepatic failure [Not Recovered/Not Resolved]
